FAERS Safety Report 15477390 (Version 1)
Quarter: 2018Q4

REPORT INFORMATION
  Report Type: Spontaneous
  Country: US (occurrence: US)
  Receive Date: 20181009
  Receipt Date: 20181009
  Transmission Date: 20190205
  Serious: No
  Sender: FDA-Public Use
  Company Number: US-HIKMA PHARMACEUTICALS USA INC.-US-H14001-17-02744

PATIENT
  Sex: Female

DRUGS (1)
  1. PROPANTHELINE BROMIDE. [Suspect]
     Active Substance: PROPANTHELINE BROMIDE
     Indication: HYPERHIDROSIS
     Route: 048
     Dates: start: 2005, end: 201706

REACTIONS (2)
  - Dry mouth [Unknown]
  - Off label use [Recovered/Resolved]

NARRATIVE: CASE EVENT DATE: 2005
